FAERS Safety Report 8817616 (Version 1)
Quarter: 2012Q4

REPORT INFORMATION
  Report Type: 
  Country: US (occurrence: US)
  Receive Date: 20121001
  Receipt Date: 20121001
  Transmission Date: 20130627
  Serious: Yes (Other)
  Sender: FDA-Public Use
  Company Number: US-SANOFI-AVENTIS-2012SA069496

PATIENT
  Sex: Male

DRUGS (1)
  1. PLAVIX [Suspect]
     Indication: TRANSIENT ISCHAEMIC ATTACK
     Route: 048
     Dates: start: 20090808

REACTIONS (4)
  - Myocardial ischaemia [Unknown]
  - Hypergammaglobulinaemia benign monoclonal [Unknown]
  - Neuropathy peripheral [Unknown]
  - Off label use [Unknown]
